FAERS Safety Report 12060704 (Version 1)
Quarter: 2016Q1

REPORT INFORMATION
  Report Type: Spontaneous
  Country: US (occurrence: US)
  Receive Date: 20160210
  Receipt Date: 20160210
  Transmission Date: 20160526
  Serious: Yes (Other)
  Sender: FDA-Public Use
  Company Number: US-PFIZER INC-2016070630

PATIENT
  Age: 44 Year
  Sex: Male
  Weight: 112 kg

DRUGS (1)
  1. CHANTIX [Suspect]
     Active Substance: VARENICLINE TARTRATE
     Dosage: UNK

REACTIONS (3)
  - Schizoaffective disorder [Unknown]
  - Condition aggravated [Unknown]
  - Bipolar disorder [Unknown]
